FAERS Safety Report 8611798 (Version 2)
Quarter: 2013Q1

REPORT INFORMATION
  Report Type: Spontaneous
  Country: US (occurrence: US)
  Receive Date: 20120613
  Receipt Date: 20130325
  Transmission Date: 20140127
  Serious: Yes (Hospitalization)
  Sender: FDA-Public Use
  Company Number: US-ASTRAZENECA-2011SE32385

PATIENT
  Age: 79 Year
  Sex: Female

DRUGS (2)
  1. RHINOCORT AQUA [Suspect]
     Route: 045
  2. CRESTOR [Suspect]
     Route: 048

REACTIONS (9)
  - Chest pain [Unknown]
  - Malaise [Unknown]
  - Upper-airway cough syndrome [Unknown]
  - Nasal congestion [Unknown]
  - Dyspnoea [Unknown]
  - Headache [Unknown]
  - Multiple allergies [Unknown]
  - Nasal discomfort [Unknown]
  - Drug dose omission [Unknown]
